FAERS Safety Report 21829924 (Version 1)
Quarter: 2023Q1

REPORT INFORMATION
  Report Type: Spontaneous
  Country: US (occurrence: None)
  Receive Date: 20230105
  Receipt Date: 20230105
  Transmission Date: 20230417
  Serious: Yes (Other)
  Sender: FDA-Public Use
  Company Number: None

PATIENT
  Age: 25 Year
  Sex: Female

DRUGS (5)
  1. TYLENOL [Suspect]
     Active Substance: ACETAMINOPHEN
     Indication: Migraine
     Dosage: PRN PO
     Route: 048
  2. MAGNESIUM [Concomitant]
  3. POTASSIUM [Concomitant]
     Active Substance: POTASSIUM
  4. VITAMIN B [Concomitant]
     Active Substance: VITAMIN B
  5. PRENATAL VITAMN [Concomitant]

REACTIONS (1)
  - Appendicitis [None]

NARRATIVE: CASE EVENT DATE: 20221009
